FAERS Safety Report 9285534 (Version 1)
Quarter: 2013Q2

REPORT INFORMATION
  Report Type: Spontaneous
  Country: US (occurrence: US)
  Receive Date: 20130513
  Receipt Date: 20130513
  Transmission Date: 20140414
  Serious: No
  Sender: FDA-Public Use
  Company Number: US-PFIZER INC-2013146887

PATIENT
  Age: 50 Year
  Sex: Female
  Weight: 92.52 kg

DRUGS (7)
  1. CHANTIX [Suspect]
     Indication: SMOKING CESSATION THERAPY
     Dosage: 0.5 MG, 2X/DAY
     Dates: start: 20130509
  2. CYMBALTA [Concomitant]
     Dosage: UNK
  3. DEPAKOTE [Concomitant]
     Dosage: UNK
  4. SIMVASTATIN [Concomitant]
     Dosage: UNK
  5. NORCO [Concomitant]
     Dosage: UNK
  6. LEVOTHROID [Concomitant]
     Dosage: UNK
  7. CLONIDINE [Concomitant]
     Dosage: UNK

REACTIONS (1)
  - Chromaturia [Not Recovered/Not Resolved]
